FAERS Safety Report 24698477 (Version 1)
Quarter: 2024Q4

REPORT INFORMATION
  Report Type: Spontaneous
  Country: US (occurrence: US)
  Receive Date: 20241204
  Receipt Date: 20241204
  Transmission Date: 20250115
  Serious: Yes (Other)
  Sender: JOHNSON AND JOHNSON
  Company Number: US-JNJFOC-20241158434

PATIENT
  Sex: Female

DRUGS (1)
  1. XARELTO [Suspect]
     Active Substance: RIVAROXABAN
     Indication: Deep vein thrombosis
     Route: 048

REACTIONS (11)
  - Cerebrovascular accident [Unknown]
  - Renal impairment [Unknown]
  - Thrombosis [Unknown]
  - Hypertension [Unknown]
  - Asthenia [Unknown]
  - Rash [Unknown]
  - Pain [Unknown]
  - Pharyngeal swelling [Unknown]
  - Faeces discoloured [Unknown]
  - Lymphadenopathy [Unknown]
  - Hypersensitivity [Unknown]
